FAERS Safety Report 18376289 (Version 2)
Quarter: 2020Q4

REPORT INFORMATION
  Report Type: Spontaneous
  Country: CN (occurrence: CN)
  Receive Date: 20201013
  Receipt Date: 20201021
  Transmission Date: 20210114
  Serious: Yes (Other)
  Sender: FDA-Public Use
  Company Number: NVSC2020CN265898

PATIENT
  Age: 72 Year
  Sex: Female

DRUGS (1)
  1. ZYKADIA [Suspect]
     Active Substance: CERITINIB
     Indication: LUNG NEOPLASM MALIGNANT
     Dosage: 3 DF, QD (3 PILLS, TOOK DURING BREAKFAST)
     Route: 048
     Dates: start: 202005

REACTIONS (8)
  - Hypoaesthesia [Recovering/Resolving]
  - Reflux gastritis [Unknown]
  - Discoloured vomit [Recovering/Resolving]
  - Gastric haemorrhage [Recovering/Resolving]
  - Liver function test abnormal [Recovering/Resolving]
  - Renal artery stenosis [Not Recovered/Not Resolved]
  - Abdominal pain [Not Recovered/Not Resolved]
  - Diarrhoea [Not Recovered/Not Resolved]
